FAERS Safety Report 6016022-3 (Version None)
Quarter: 2008Q4

REPORT INFORMATION
  Report Type: 
  Country: None (occurrence: None)
  Receive Date: 20081222
  Receipt Date: 20081219
  Transmission Date: 20090506
  Serious: No
  Sender: FDA-Public Use
  Company Number: US-EISAI MEDICAL RESEARCH-E2080-00094-CLI-US

PATIENT
  Sex: Female
  Weight: 51 kg

DRUGS (7)
  1. E2080 [Suspect]
     Indication: EPILEPSY
     Route: 048
     Dates: start: 20081028, end: 20081218
  2. LEVETIRACETAM [Concomitant]
     Route: 048
     Dates: start: 20020101
  3. LAMOTRIGINE [Concomitant]
     Route: 048
     Dates: start: 20060101
  4. ESCITALOPRAM [Concomitant]
     Route: 048
     Dates: start: 20070701
  5. CENTRUM SILVER [Concomitant]
     Route: 048
     Dates: start: 20000101
  6. CITRACAL [Concomitant]
     Route: 048
     Dates: start: 20000101
  7. IRON [Concomitant]
     Route: 048
     Dates: start: 20080511

REACTIONS (1)
  - SUICIDAL BEHAVIOUR [None]
